FAERS Safety Report 16712098 (Version 1)
Quarter: 2019Q3

REPORT INFORMATION
  Report Type: Spontaneous
  Country: DE (occurrence: DE)
  Receive Date: 20190816
  Receipt Date: 20190816
  Transmission Date: 20191004
  Serious: Yes (Other)
  Sender: FDA-Public Use
  Company Number: DE-MYLANLABS-2019M1040629

PATIENT
  Age: 61 Year
  Sex: Male
  Weight: 90 kg

DRUGS (8)
  1. PRAMIPEXOLE. [Suspect]
     Active Substance: PRAMIPEXOLE
     Dosage: 0.52 MG, UNK
     Route: 048
     Dates: start: 20180712, end: 20180718
  2. PRAMIPEXOLE. [Suspect]
     Active Substance: PRAMIPEXOLE
     Dosage: 1.57 MG, BID
     Route: 048
     Dates: start: 20180917, end: 20181201
  3. LEVODOPA/BENSERAZIDE [Suspect]
     Active Substance: BENSERAZIDE\LEVODOPA
     Indication: PRODUCT USED FOR UNKNOWN INDICATION
     Dosage: 1 DF, TID (STRENGTH: 50/12.5)
     Route: 048
     Dates: start: 20180415, end: 20180630
  4. LUCENTIS [Suspect]
     Active Substance: RANIBIZUMAB
     Indication: EYE OEDEMA
     Dosage: UNK
     Route: 065
     Dates: start: 20111103, end: 20120502
  5. AVASTIN [Suspect]
     Active Substance: BEVACIZUMAB
     Indication: EYE OEDEMA
     Dosage: UNK
     Route: 065
     Dates: start: 20110405, end: 20151015
  6. PRAMIPEXOLE. [Suspect]
     Active Substance: PRAMIPEXOLE
     Indication: PARKINSON^S DISEASE
     Dosage: 2 X 1
     Route: 048
     Dates: start: 20180701, end: 201811
  7. EYLEA [Concomitant]
     Active Substance: AFLIBERCEPT
     Indication: PRODUCT USED FOR UNKNOWN INDICATION
     Dosage: UNK
     Route: 065
  8. PRAMIPEXOLE. [Suspect]
     Active Substance: PRAMIPEXOLE
     Dosage: 1.05 UNK
     Route: 048
     Dates: start: 20180719, end: 20180917

REACTIONS (5)
  - Eye oedema [Recovering/Resolving]
  - Subretinal fluid [Not Recovered/Not Resolved]
  - Drug ineffective [Unknown]
  - Condition aggravated [Not Recovered/Not Resolved]
  - Retinal oedema [Not Recovered/Not Resolved]

NARRATIVE: CASE EVENT DATE: 2018
